FAERS Safety Report 8025316-1 (Version None)
Quarter: 2012Q1

REPORT INFORMATION
  Report Type: 
  Country: None (occurrence: None)
  Receive Date: 20120105
  Receipt Date: 20111227
  Transmission Date: 20120608
  Serious: Yes (Other)
  Sender: FDA-Public Use
  Company Number: US-JNJFOC-20111211682

PATIENT
  Age: 48 Year
  Sex: Female

DRUGS (7)
  1. HYDROCODONE [Concomitant]
     Indication: PAIN
     Route: 065
     Dates: start: 20080101
  2. TYLENOL-500 [Suspect]
     Route: 048
     Dates: start: 20111225, end: 20111225
  3. NASONEX [Concomitant]
     Indication: SINUS DISORDER
     Dates: start: 20030101
  4. TYLENOL-500 [Suspect]
     Indication: ARTHRITIS
     Dosage: USING  TYELNO,L ARTHRITIS FOR YEARS
     Route: 048
  5. MICARDIS [Concomitant]
     Indication: HYPERTENSION
     Dates: start: 20010101
  6. SYNTHROID [Concomitant]
     Indication: HYPOTHYROIDISM
     Dosage: DAILY DOSE =100 MCG (MICROGRAMS)
     Route: 048
  7. PROAIR HFA [Concomitant]
     Indication: ASTHMA
     Dates: start: 19810101

REACTIONS (3)
  - MEMORY IMPAIRMENT [None]
  - PRODUCT QUALITY ISSUE [None]
  - FATIGUE [None]
